FAERS Safety Report 5989512-7 (Version None)
Quarter: 2008Q4

REPORT INFORMATION
  Report Type: 
  Country: None (occurrence: None)
  Receive Date: 20081210
  Receipt Date: 20081202
  Transmission Date: 20090506
  Serious: Yes (Other)
  Sender: FDA-Public Use
  Company Number: US-ALLERGAN-0813639US

PATIENT
  Sex: Female
  Weight: 52.154 kg

DRUGS (13)
  1. BOTOX [Suspect]
     Indication: DYSTONIA
     Dosage: 550 UNITS, SINGLE
     Route: 030
     Dates: start: 20081016, end: 20081016
  2. BOTOX [Suspect]
     Dosage: 400 UNITS, SINGLE
     Route: 030
  3. BOTOX [Suspect]
     Dosage: UNK, SINGLE
     Route: 030
     Dates: start: 20080723, end: 20080723
  4. BOTOX [Suspect]
     Dosage: UNK, SINGLE
     Route: 030
     Dates: start: 20080417, end: 20080417
  5. BOTOX [Suspect]
     Dosage: UNK, SINGLE
     Route: 030
     Dates: start: 20080117, end: 20080117
  6. MULTI-VITAMIN [Concomitant]
  7. TRIVORA-21 [Concomitant]
     Dosage: UNK, QD
  8. VITAMIN B-12 [Concomitant]
  9. CALCIUM [Concomitant]
  10. VITAMIN D [Concomitant]
  11. MAGNESIUM SULFATE [Concomitant]
  12. ZANAFLEX [Concomitant]
     Dosage: HALF, BID
     Route: 048
  13. DANTROLENE SODIUM [Concomitant]
     Dosage: 25 MG, QHS
     Route: 048

REACTIONS (11)
  - ASTHENIA [None]
  - CONSTIPATION [None]
  - DRY MOUTH [None]
  - DYSPHAGIA [None]
  - DYSPNOEA [None]
  - FATIGUE [None]
  - MEDICATION ERROR [None]
  - MYALGIA [None]
  - SENSATION OF HEAVINESS [None]
  - VISION BLURRED [None]
  - VISUAL IMPAIRMENT [None]
